FAERS Safety Report 5351417-2 (Version None)
Quarter: 2007Q2

REPORT INFORMATION
  Report Type: 
  Country: None (occurrence: None)
  Receive Date: 20070521
  Receipt Date: 20070131
  Transmission Date: 20071010
  Serious: No
  Sender: FDA-Public Use
  Company Number: WAES 0612USA02085

PATIENT
  Age: 54 Year
  Sex: Female
  Weight: 122.4712 kg

DRUGS (12)
  1. JANUVIA [Suspect]
     Indication: DIABETES MELLITUS INADEQUATE CONTROL
     Dosage: 100 MG/DAILY/PO
     Route: 048
     Dates: start: 20061130, end: 20061212
  2. DEMADEX [Concomitant]
  3. DESYREL [Concomitant]
  4. DIOVAN [Concomitant]
  5. LOZOL [Concomitant]
  6. MAXALT [Concomitant]
  7. PROTONIX [Concomitant]
  8. SLOW-MAG [Concomitant]
  9. SUNTHROID [Concomitant]
  10. ZETIA [Concomitant]
  11. ASPIRIN [Concomitant]
  12. INSULIN [Concomitant]

REACTIONS (7)
  - ABDOMINAL PAIN [None]
  - DYSPEPSIA [None]
  - FLATULENCE [None]
  - HYPOAESTHESIA [None]
  - NAUSEA [None]
  - PARAESTHESIA [None]
  - PELVIC PAIN [None]
